FAERS Safety Report 23255376 (Version 1)
Quarter: 2023Q4

REPORT INFORMATION
  Report Type: Spontaneous
  Country: None (occurrence: CN)
  Receive Date: 20231203
  Receipt Date: 20231203
  Transmission Date: 20240110
  Serious: Yes (Life-Threatening, Other)
  Sender: FDA-Public Use
  Company Number: CN-Jiangsu Hansoh Pharmaceutical Co., Ltd-2148940

PATIENT
  Age: 47 Year
  Sex: Male
  Weight: 70 kg

DRUGS (3)
  1. GEMCITABINE [Suspect]
     Active Substance: GEMCITABINE
     Indication: Nasopharyngeal cancer
     Route: 041
     Dates: start: 20231107, end: 20231107
  2. NEDAPLATIN [Concomitant]
     Active Substance: NEDAPLATIN
     Route: 041
     Dates: start: 20231107, end: 20231107
  3. TORIPALIMAB [Concomitant]
     Active Substance: TORIPALIMAB
     Route: 041
     Dates: start: 20231107, end: 20231107

REACTIONS (2)
  - Myelosuppression [Recovering/Resolving]
  - Off label use [Unknown]

NARRATIVE: CASE EVENT DATE: 20231107
